FAERS Safety Report 16475789 (Version 1)
Quarter: 2019Q2

REPORT INFORMATION
  Report Type: Spontaneous
  Country: FR (occurrence: FR)
  Receive Date: 20190625
  Receipt Date: 20190625
  Transmission Date: 20190711
  Serious: Yes (Hospitalization)
  Sender: FDA-Public Use
  Company Number: FR-009507513-1906FRA007048

PATIENT
  Age: 55 Year
  Sex: Female
  Weight: 102 kg

DRUGS (3)
  1. GAVISCON (ALUMINUM HYDROXIDE (+) CALCIUM CARBONATE (+) SODIUM ALGINATE [Concomitant]
     Active Substance: ALUMINUM HYDROXIDE \CALCIUM CARBONATE\SODIUM ALGINATE\SODIUM BICARBONATE
  2. DIPROSTENE [Suspect]
     Active Substance: BETAMETHASONE DIPROPIONATE\BETAMETHASONE SODIUM PHOSPHATE
     Indication: OSTEOARTHRITIS
     Dosage: 1 DOSAGE FORM
     Route: 014
     Dates: start: 20190220, end: 20190220
  3. ONGLYZA [Concomitant]
     Active Substance: SAXAGLIPTIN HYDROCHLORIDE

REACTIONS (2)
  - Hyperglycaemia [Recovering/Resolving]
  - Diabetic metabolic decompensation [Recovering/Resolving]

NARRATIVE: CASE EVENT DATE: 20190228
